FAERS Safety Report 4867933-3 (Version None)
Quarter: 2005Q4

REPORT INFORMATION
  Report Type: 
  Country: None (occurrence: None)
  Receive Date: 20051227
  Receipt Date: 20051220
  Transmission Date: 20060501
  Serious: Yes (Other)
  Sender: FDA-Public Use
  Company Number: 2005-12-0522

PATIENT
  Age: 8 Year
  Sex: Male
  Weight: 28 kg

DRUGS (3)
  1. CLARINEX [Suspect]
     Indication: HYPERSENSITIVITY
     Dosage: 2.5-5 MG QD ORAL
     Route: 048
     Dates: start: 20040101
  2. FLUTIDE (FLUTICASONE PROPIONATE) [Concomitant]
  3. VENTOLIN [Concomitant]

REACTIONS (2)
  - AGGRESSION [None]
  - MENTAL DISORDER [None]
